FAERS Safety Report 14700884 (Version 3)
Quarter: 2019Q2

REPORT INFORMATION
  Report Type: Spontaneous
  Country: US (occurrence: US)
  Receive Date: 20180330
  Receipt Date: 20190404
  Transmission Date: 20190711
  Serious: Yes (Other)
  Sender: FDA-Public Use
  Company Number: US-ASTRAZENECA-2018SE39093

PATIENT
  Sex: Female

DRUGS (36)
  1. FERROUS SULFATE. [Concomitant]
     Active Substance: FERROUS SULFATE
  2. SYNTHROID [Concomitant]
     Active Substance: LEVOTHYROXINE SODIUM
  3. TOPIRAMATE. [Concomitant]
     Active Substance: TOPIRAMATE
  4. IBUPROFEN. [Concomitant]
     Active Substance: IBUPROFEN
  5. FLUCONAZOLE. [Concomitant]
     Active Substance: FLUCONAZOLE
  6. PRILOSEC OTC [Suspect]
     Active Substance: OMEPRAZOLE MAGNESIUM
     Route: 048
     Dates: start: 20100101, end: 20161231
  7. PROTONIX [Suspect]
     Active Substance: PANTOPRAZOLE SODIUM
     Route: 065
     Dates: start: 201001, end: 201601
  8. CYCLOBENZAPRINE. [Concomitant]
     Active Substance: CYCLOBENZAPRINE
  9. CEPHALEXIN. [Concomitant]
     Active Substance: CEPHALEXIN
  10. ROPINIROLE. [Concomitant]
     Active Substance: ROPINIROLE
  11. CLINDAMYCIN. [Concomitant]
     Active Substance: CLINDAMYCIN
  12. FUROSEMIDE. [Concomitant]
     Active Substance: FUROSEMIDE
  13. SPIRONOLACTONE. [Concomitant]
     Active Substance: SPIRONOLACTONE
  14. LOSARTAN. [Concomitant]
     Active Substance: LOSARTAN
  15. SINGULAIR [Concomitant]
     Active Substance: MONTELUKAST SODIUM
  16. NEXIUM [Suspect]
     Active Substance: ESOMEPRAZOLE MAGNESIUM
     Route: 048
     Dates: start: 201001, end: 201601
  17. DEXILANT [Suspect]
     Active Substance: DEXLANSOPRAZOLE
     Route: 065
     Dates: start: 201001, end: 201601
  18. GABAPENTIN. [Concomitant]
     Active Substance: GABAPENTIN
  19. PREMARIN [Concomitant]
     Active Substance: ESTROGENS, CONJUGATED
  20. NEXIUM 24HR [Suspect]
     Active Substance: ESOMEPRAZOLE MAGNESIUM
     Route: 048
     Dates: start: 201001, end: 201601
  21. PREVACID [Suspect]
     Active Substance: LANSOPRAZOLE
     Route: 065
     Dates: start: 201001, end: 201601
  22. PREVACID 24 HR [Suspect]
     Active Substance: LANSOPRAZOLE
     Route: 065
     Dates: start: 201001, end: 201601
  23. EPIPEN [Concomitant]
     Active Substance: EPINEPHRINE
  24. ZOLPIDEM [Concomitant]
     Active Substance: ZOLPIDEM\ZOLPIDEM TARTRATE
  25. DEXILANT [Suspect]
     Active Substance: DEXLANSOPRAZOLE
     Route: 065
     Dates: start: 20120625, end: 20120625
  26. NYSTOP [Concomitant]
     Active Substance: NYSTATIN
  27. DIAZEPAM. [Concomitant]
     Active Substance: DIAZEPAM
  28. HYDROCODONE [Concomitant]
     Active Substance: HYDROCODONE
  29. NEXIUM [Suspect]
     Active Substance: ESOMEPRAZOLE MAGNESIUM
     Route: 048
     Dates: start: 201001, end: 201612
  30. PRILOSEC [Suspect]
     Active Substance: OMEPRAZOLE MAGNESIUM
     Route: 048
     Dates: start: 201001, end: 201601
  31. PRILOSEC [Suspect]
     Active Substance: OMEPRAZOLE MAGNESIUM
     Route: 048
     Dates: start: 201001, end: 201612
  32. PRILOSEC OTC [Suspect]
     Active Substance: OMEPRAZOLE MAGNESIUM
     Route: 048
     Dates: start: 201001, end: 201601
  33. MONTELUKAST [Concomitant]
     Active Substance: MONTELUKAST SODIUM
  34. BISACODYL. [Concomitant]
     Active Substance: BISACODYL
  35. MORPHINE [Concomitant]
     Active Substance: MORPHINE
  36. NAPROXEN. [Concomitant]
     Active Substance: NAPROXEN

REACTIONS (3)
  - Renal injury [Unknown]
  - Acute kidney injury [Unknown]
  - Chronic kidney disease [Unknown]
